FAERS Safety Report 8359512-0 (Version None)
Quarter: 2012Q2

REPORT INFORMATION
  Report Type: 
  Country: None (occurrence: None)
  Receive Date: 20120515
  Receipt Date: 20120504
  Transmission Date: 20120825
  Serious: Yes (Hospitalization)
  Sender: FDA-Public Use
  Company Number: FR-SANOFI-AVENTIS-2012SA031727

PATIENT
  Age: 50 Year
  Sex: Male
  Weight: 108 kg

DRUGS (6)
  1. ALDACTONE [Suspect]
     Route: 048
     Dates: end: 20110826
  2. LASIX [Suspect]
     Route: 048
     Dates: end: 20110826
  3. PROPRANOLOL [Concomitant]
     Route: 048
  4. NEXIUM [Concomitant]
     Route: 048
  5. URSODIOL [Concomitant]
     Route: 048
  6. TOCO [Concomitant]
     Route: 048

REACTIONS (1)
  - RENAL FAILURE ACUTE [None]
